FAERS Safety Report 4765396-X (Version None)
Quarter: 2005Q3

REPORT INFORMATION
  Report Type: 
  Country: None (occurrence: None)
  Receive Date: 20050908
  Receipt Date: 20050908
  Transmission Date: 20060218
  Serious: Yes (Hospitalization)
  Sender: FDA-Public Use
  Company Number: None

PATIENT
  Sex: Female
  Weight: 90.7194 kg

DRUGS (2)
  1. COUMADIN [Suspect]
     Indication: ATRIAL FIBRILLATION
  2. AMIODARONE    200 MG [Suspect]
     Indication: ATRIAL FIBRILLATION
     Dosage: 200 MG  DAILY  PO
     Route: 048

REACTIONS (2)
  - DIZZINESS [None]
  - DRUG TOXICITY [None]
